FAERS Safety Report 19607540 (Version 2)
Quarter: 2021Q3

REPORT INFORMATION
  Report Type: Report from Study
  Country: IN (occurrence: IN)
  Receive Date: 20210726
  Receipt Date: 20210903
  Transmission Date: 20211014
  Serious: Yes (Hospitalization, Other)
  Sender: FDA-Public Use
  Company Number: IN-ALEMBIC PHARMACUETICALS LIMITED-2021SCAL000329

PATIENT

DRUGS (1)
  1. DESVENLAFAXINE (BASE) [Suspect]
     Active Substance: DESVENLAFAXINE
     Dosage: 100 MG, QD FOR SIX DAYS
     Route: 048
     Dates: start: 20210709, end: 20210711

REACTIONS (1)
  - Cholecystitis infective [Recovered/Resolved]

NARRATIVE: CASE EVENT DATE: 20210711
